FAERS Safety Report 8165482-0 (Version None)
Quarter: 2012Q1

REPORT INFORMATION
  Report Type: 
  Country: None (occurrence: None)
  Receive Date: 20120227
  Receipt Date: 20111118
  Transmission Date: 20120608
  Serious: No
  Sender: FDA-Public Use
  Company Number: US-MYLANLABS-2011S1023885

PATIENT
  Age: 72 Year
  Sex: Female

DRUGS (4)
  1. LEVOTHYROXINE SODIUM [Concomitant]
     Indication: HYPOTHYROIDISM
     Route: 048
  2. ASPIRIN [Concomitant]
  3. METOPROLOL TARTRATE [Suspect]
     Indication: BLOOD PRESSURE INCREASED
     Route: 048
     Dates: start: 20080301, end: 20081101
  4. METOPROLOL TARTRATE [Suspect]
     Route: 048
     Dates: start: 20081101, end: 20090801

REACTIONS (6)
  - ASTHENIA [None]
  - PRURITUS [None]
  - FATIGUE [None]
  - DRY SKIN [None]
  - THIRST [None]
  - DIZZINESS [None]
